FAERS Safety Report 17645063 (Version 1)
Quarter: 2020Q2

REPORT INFORMATION
  Report Type: Spontaneous
  Country: NL (occurrence: NL)
  Receive Date: 20200408
  Receipt Date: 20200408
  Transmission Date: 20200713
  Serious: Yes (Other)
  Sender: FDA-Public Use
  Company Number: NL-BAXTER-2020BAX007086

PATIENT
  Age: 56 Year
  Sex: Male

DRUGS (5)
  1. BUPIVACAINE HCL BAXTER 2.5 MG/ML OPLOSSING VOOR INJECTIE [Suspect]
     Active Substance: BUPIVACAINE HYDROCHLORIDE
     Indication: ANAESTHESIA
     Route: 008
  2. BUPIVACAINE HCL BAXTER 2.5 MG/ML OPLOSSING VOOR INJECTIE [Suspect]
     Active Substance: BUPIVACAINE HYDROCHLORIDE
     Route: 008
  3. SUFENTANIL [Concomitant]
     Active Substance: SUFENTANIL
     Route: 008
  4. PROPOFOL. [Concomitant]
     Active Substance: PROPOFOL
     Indication: INDUCTION OF ANAESTHESIA
     Route: 065
  5. SUFENTANIL [Concomitant]
     Active Substance: SUFENTANIL
     Indication: ANAESTHESIA
     Route: 008

REACTIONS (2)
  - Brugada syndrome [Recovered/Resolved]
  - Ventricular tachycardia [Recovered/Resolved]
